FAERS Safety Report 6389468-1 (Version None)
Quarter: 2009Q4

REPORT INFORMATION
  Report Type: 
  Country: None (occurrence: None)
  Receive Date: 20091006
  Receipt Date: 20090911
  Transmission Date: 20100525
  Serious: No
  Sender: FDA-Public Use
  Company Number: BR-ROCHE-650067

PATIENT
  Sex: Male
  Weight: 90 kg

DRUGS (2)
  1. TAMIFLU [Suspect]
     Dosage: FREQUENCY: 1 CAPSULE OF 75 MG EVERY 12 HOURS
     Route: 048
     Dates: start: 20090804, end: 20090810
  2. ACETAMINOPHEN [Concomitant]
     Dates: end: 20090806

REACTIONS (1)
  - PRODUCT ODOUR ABNORMAL [None]
